FAERS Safety Report 6195907-1 (Version None)
Quarter: 2009Q2

REPORT INFORMATION
  Report Type: 
  Country: None (occurrence: None)
  Receive Date: 20090520
  Receipt Date: 20090512
  Transmission Date: 20091009
  Serious: Yes (Other)
  Sender: FDA-Public Use
  Company Number: US-ROCHE-633142

PATIENT
  Sex: Male

DRUGS (1)
  1. CAPECITABINE [Suspect]
     Dosage: FOR 2 WEEKS THEN ONE WEEK OFF
     Route: 048
     Dates: start: 20090319, end: 20090428

REACTIONS (1)
  - DISEASE PROGRESSION [None]
